FAERS Safety Report 9360607 (Version 2)
Quarter: 2014Q1

REPORT INFORMATION
  Report Type: Spontaneous
  Country: US (occurrence: US)
  Receive Date: 20130621
  Receipt Date: 20140307
  Transmission Date: 20141002
  Serious: Yes (Hospitalization, Other)
  Sender: FDA-Public Use
  Company Number: US-BAYER-2013-073840

PATIENT
  Age: 20 Year
  Sex: Female
  Weight: 52.15 kg

DRUGS (1)
  1. MIRENA [Suspect]
     Indication: CONTRACEPTION
     Dosage: 20 MCG/24HR, CONT
     Route: 015
     Dates: start: 20100719, end: 20110606

REACTIONS (7)
  - Uterine perforation [None]
  - Peritoneal perforation [None]
  - Pain [None]
  - Injury [None]
  - Emotional distress [None]
  - Depression [None]
  - Anxiety [None]
